FAERS Safety Report 6159196-6 (Version None)
Quarter: 2009Q2

REPORT INFORMATION
  Report Type: 
  Country: None (occurrence: None)
  Receive Date: 20090417
  Receipt Date: 20090406
  Transmission Date: 20091009
  Serious: Yes (Death, Hospitalization)
  Sender: FDA-Public Use
  Company Number: GB-GENENTECH-278884

PATIENT
  Sex: Female

DRUGS (2)
  1. BEVACIZUMAB [Suspect]
     Indication: RECTAL CANCER
     Dosage: 470 MG, Q3W
     Route: 042
     Dates: start: 20080305
  2. CAPECITABINE [Suspect]
     Indication: RECTAL CANCER
     Dosage: 1000 MG, BID
     Route: 048
     Dates: start: 20080305

REACTIONS (1)
  - VOLVULUS [None]
